FAERS Safety Report 6219040-5 (Version None)
Quarter: 2009Q2

REPORT INFORMATION
  Report Type: 
  Country: None (occurrence: None)
  Receive Date: 20090608
  Receipt Date: 20090527
  Transmission Date: 20091009
  Serious: Yes (Hospitalization)
  Sender: FDA-Public Use
  Company Number: US-PFIZER INC-2009222305

PATIENT
  Sex: Male

DRUGS (3)
  1. GEODON [Suspect]
     Indication: BORDERLINE PERSONALITY DISORDER
  2. GEODON [Suspect]
     Indication: DEPRESSION
  3. LAMICTAL [Concomitant]

REACTIONS (2)
  - OVERDOSE [None]
  - SUICIDAL BEHAVIOUR [None]
